FAERS Safety Report 6105782-9 (Version None)
Quarter: 2009Q1

REPORT INFORMATION
  Report Type: 
  Country: None (occurrence: None)
  Receive Date: 20090304
  Receipt Date: 20090304
  Transmission Date: 20090719
  Serious: No
  Sender: FDA-Public Use
  Company Number: None

PATIENT
  Sex: Female
  Weight: 61.2356 kg

DRUGS (2)
  1. BUDEPRION XL 300 MG TEVA USA [Suspect]
     Indication: MENOPAUSE
     Dosage: 1 PILL 1X DAY PO
     Route: 048
     Dates: start: 20090209, end: 20090219
  2. BUDEPRION XL 300 MG TEVA USA [Suspect]
     Indication: MENOPAUSE
     Dosage: 1 PILL 1X DAY PO
     Route: 048
     Dates: start: 20090301, end: 20090302

REACTIONS (4)
  - DIZZINESS [None]
  - FEELING JITTERY [None]
  - REACTION TO DRUG EXCIPIENTS [None]
  - TREMOR [None]
